FAERS Safety Report 9116602 (Version 1)
Quarter: 2013Q1

REPORT INFORMATION
  Report Type: Spontaneous
  Country: DE (occurrence: DE)
  Receive Date: 20130225
  Receipt Date: 20130225
  Transmission Date: 20140127
  Serious: Yes (Other)
  Sender: FDA-Public Use
  Company Number: DE-JNJFOC-20130211146

PATIENT
  Age: 83 Year
  Sex: Female
  Weight: 57 kg

DRUGS (2)
  1. XARELTO [Suspect]
     Indication: CEREBROVASCULAR ACCIDENT PROPHYLAXIS
     Route: 048
     Dates: start: 20121008, end: 20130109
  2. XARELTO [Suspect]
     Indication: TACHYARRHYTHMIA
     Route: 048
     Dates: start: 20121008, end: 20130109

REACTIONS (1)
  - Hepatotoxicity [Not Recovered/Not Resolved]
